FAERS Safety Report 7093768-X (Version None)
Quarter: 2010Q4

REPORT INFORMATION
  Report Type: 
  Country: None (occurrence: None)
  Receive Date: 20101110
  Receipt Date: 20101105
  Transmission Date: 20110411
  Serious: Yes (Other)
  Sender: FDA-Public Use
  Company Number: US-BAYER-201039990NA

PATIENT
  Age: 23 Year
  Sex: Female

DRUGS (4)
  1. YAZ [Suspect]
     Indication: PRODUCT USED FOR UNKNOWN INDICATION
     Route: 048
     Dates: start: 20040701, end: 20050901
  2. YAZ [Suspect]
     Route: 048
     Dates: start: 20081201, end: 20090201
  3. YASMIN [Suspect]
     Indication: PRODUCT USED FOR UNKNOWN INDICATION
     Route: 048
     Dates: start: 20040701, end: 20050901
  4. YASMIN [Suspect]
     Route: 048
     Dates: start: 20081201, end: 20090201

REACTIONS (1)
  - CHOLECYSTITIS [None]
